FAERS Safety Report 5812525-2 (Version None)
Quarter: 2008Q3

REPORT INFORMATION
  Report Type: 
  Country: None (occurrence: None)
  Receive Date: 20080711
  Receipt Date: 20080625
  Transmission Date: 20090109
  Serious: Yes (Hospitalization)
  Sender: FDA-Public Use
  Company Number: 8033890

PATIENT
  Age: 70 Year
  Sex: Female

DRUGS (1)
  1. XYZAL [Suspect]
     Indication: SKIN LESION
     Dosage: 5 MG 1/D PO
     Route: 048
     Dates: start: 20080602, end: 20080609

REACTIONS (5)
  - ALANINE AMINOTRANSFERASE INCREASED [None]
  - ASPARTATE AMINOTRANSFERASE INCREASED [None]
  - CHOLANGITIS [None]
  - GAMMA-GLUTAMYLTRANSFERASE INCREASED [None]
  - HEPATITIS [None]
